FAERS Safety Report 4266781-5 (Version None)
Quarter: 2004Q1

REPORT INFORMATION
  Report Type: 
  Country: None (occurrence: None)
  Receive Date: 20040108
  Receipt Date: 20030609
  Transmission Date: 20041129
  Serious: No
  Sender: FDA-Public Use
  Company Number: US-BRISTOL-MYERS SQUIBB COMPANY-12297008

PATIENT
  Age: 5 Decade
  Sex: Male

DRUGS (1)
  1. CARDIOLITE [Suspect]
     Dosage: RECEIVED BOTH THE REST AND STRESS DOSES.
     Dates: start: 20030520, end: 20030520

REACTIONS (2)
  - CHILLS [None]
  - PYREXIA [None]
